FAERS Safety Report 8581791-5 (Version None)
Quarter: 2012Q3

REPORT INFORMATION
  Report Type: 
  Country: None (occurrence: None)
  Receive Date: 20120809
  Receipt Date: 20120803
  Transmission Date: 20120928
  Serious: Yes (Other)
  Sender: FDA-Public Use
  Company Number: PHHY2012JP058692

PATIENT
  Sex: Female
  Weight: 37 kg

DRUGS (8)
  1. SYMMETREL [Suspect]
     Indication: PARKINSON'S DISEASE
     Dosage: 300 MG, UNK
     Route: 048
     Dates: end: 20120704
  2. SELBEX [Concomitant]
     Indication: GASTRIC ULCER
     Dosage: 150 MG, UNK
     Route: 048
  3. PRAMIPEXOLE DIHYDROCHLORIDE [Concomitant]
     Indication: PARKINSON'S DISEASE
     Dosage: 3 MG, UNK
     Route: 048
  4. ZONISAMIDE [Concomitant]
     Indication: PARKINSON'S DISEASE
     Dosage: 25 MG, UNK
     Route: 048
  5. COMTAN [Suspect]
     Indication: PARKINSON'S DISEASE
     Dosage: 300 MG, UNK
     Route: 048
  6. MENEST [Concomitant]
     Indication: PARKINSON'S DISEASE
     Dosage: 300 MG, UNK
     Route: 048
  7. SELEGILINE HYDROCHLORIDE [Concomitant]
     Indication: PARKINSON'S DISEASE
     Dosage: 5 MG, UNK
     Route: 048
  8. ISOSORBIDE MONONITRATE [Concomitant]
     Indication: ANGINA PECTORIS
     Dosage: 40 MG, UNK
     Route: 048

REACTIONS (3)
  - ENCEPHALITIS [None]
  - CONVULSION [None]
  - ALTERED STATE OF CONSCIOUSNESS [None]
